FAERS Safety Report 13820063 (Version 1)
Quarter: 2017Q3

REPORT INFORMATION
  Report Type: Spontaneous
  Country: DE (occurrence: DE)
  Receive Date: 20170801
  Receipt Date: 20170801
  Transmission Date: 20171127
  Serious: Yes (Other)
  Sender: FDA-Public Use
  Company Number: DE-LUPIN PHARMACEUTICALS INC.-US-2009-00207

PATIENT
  Age: 81 Year
  Sex: Female

DRUGS (2)
  1. RAMIPRIL CAPSULES USP, 1.25 MG [Suspect]
     Active Substance: RAMIPRIL
     Indication: HYPERTENSION
     Dosage: UNK UNK,UNK,DOSE / FREQUENCY NOT PROVIDED
     Route: 048
  2. QUINAPRIL TABLETS USP 40 MG [Suspect]
     Active Substance: QUINAPRIL
     Indication: HYPERTENSION
     Dosage: UNK UNK,UNK,DOSE / FREQUENCY NOT PROVIDED
     Route: 048

REACTIONS (4)
  - Skin swelling [None]
  - Swollen tongue [None]
  - Angioedema [Recovered/Resolved]
  - Upper airway obstruction [None]
